FAERS Safety Report 6609822-X (Version None)
Quarter: 2010Q1

REPORT INFORMATION
  Report Type: 
  Country: None (occurrence: None)
  Receive Date: 20100302
  Receipt Date: 20100218
  Transmission Date: 20100710
  Serious: Yes (Hospitalization, Other)
  Sender: FDA-Public Use
  Company Number: PHHY2010US10181

PATIENT
  Sex: Female
  Weight: 64 kg

DRUGS (3)
  1. ERL 080A ERL+TAB [Suspect]
     Indication: RENAL TRANSPLANT
     Dosage: 2000 MG/DAY
     Route: 048
     Dates: start: 20100205
  2. TACROLIMUS [Concomitant]
     Indication: IMMUNOSUPPRESSION
     Dosage: 2 MG, BID
     Dates: start: 20100205
  3. PREDNISONE [Concomitant]
     Indication: IMMUNOSUPPRESSION
     Dosage: 10 MG, QD
     Dates: start: 20100205

REACTIONS (2)
  - BLOOD CREATININE INCREASED [None]
  - FLUID RETENTION [None]
